FAERS Safety Report 6077198-5 (Version None)
Quarter: 2009Q1

REPORT INFORMATION
  Report Type: 
  Country: None (occurrence: None)
  Receive Date: 20090211
  Receipt Date: 20090130
  Transmission Date: 20090719
  Serious: Yes (Other)
  Sender: FDA-Public Use
  Company Number: GXKR2008GB03333

PATIENT
  Age: 53 Year
  Sex: Male

DRUGS (8)
  1. MIRTAZAPINE [Suspect]
     Indication: ALCOHOL INTERACTION
     Dosage: 15-30 MG, ORAL, 15 MG, ORAL, 30 MG, ORAL
     Route: 048
     Dates: start: 20070201, end: 20070529
  2. MIRTAZAPINE [Suspect]
     Indication: DEPRESSION
     Dosage: 15-30 MG, ORAL, 15 MG, ORAL, 30 MG, ORAL
     Route: 048
     Dates: start: 20070201, end: 20070529
  3. MIRTAZAPINE [Suspect]
     Indication: ALCOHOL INTERACTION
     Dosage: 15-30 MG, ORAL, 15 MG, ORAL, 30 MG, ORAL
     Route: 048
     Dates: start: 20070529, end: 20070608
  4. MIRTAZAPINE [Suspect]
     Indication: DEPRESSION
     Dosage: 15-30 MG, ORAL, 15 MG, ORAL, 30 MG, ORAL
     Route: 048
     Dates: start: 20070529, end: 20070608
  5. MIRTAZAPINE [Suspect]
     Indication: ALCOHOL INTERACTION
     Dosage: 15-30 MG, ORAL, 15 MG, ORAL, 30 MG, ORAL
     Route: 048
     Dates: start: 20070906, end: 20070914
  6. MIRTAZAPINE [Suspect]
     Indication: DEPRESSION
     Dosage: 15-30 MG, ORAL, 15 MG, ORAL, 30 MG, ORAL
     Route: 048
     Dates: start: 20070906, end: 20070914
  7. MIRTAZAPINE [Suspect]
     Indication: ALCOHOL INTERACTION
     Dosage: 15-30 MG, ORAL, 15 MG, ORAL, 30 MG, ORAL
     Route: 048
     Dates: start: 20070914
  8. MIRTAZAPINE [Suspect]
     Indication: DEPRESSION
     Dosage: 15-30 MG, ORAL, 15 MG, ORAL, 30 MG, ORAL
     Route: 048
     Dates: start: 20070914

REACTIONS (9)
  - ABNORMAL DREAMS [None]
  - AGGRESSION [None]
  - ALCOHOL POISONING [None]
  - DEPRESSED LEVEL OF CONSCIOUSNESS [None]
  - DEPRESSION [None]
  - HOMICIDE [None]
  - JOINT SWELLING [None]
  - NIGHTMARE [None]
  - OEDEMA PERIPHERAL [None]
